FAERS Safety Report 7681629-4 (Version None)
Quarter: 2011Q3

REPORT INFORMATION
  Report Type: 
  Country: None (occurrence: None)
  Receive Date: 20110812
  Receipt Date: 20110808
  Transmission Date: 20111222
  Serious: Yes (Hospitalization, Other)
  Sender: FDA-Public Use
  Company Number: PHHY2011JP72075

PATIENT
  Sex: Male

DRUGS (41)
  1. PROGRAF [Suspect]
     Dosage: UNK UKN, UNK
     Route: 048
     Dates: start: 20101122, end: 20101215
  2. PREDNISOLONE [Suspect]
     Dosage: 24 MG,
     Route: 042
     Dates: start: 20100603, end: 20100604
  3. PREDNISOLONE [Concomitant]
     Dosage: 10 MG,
     Route: 048
  4. NICARDIPINE HCL [Concomitant]
     Dosage: UNK UKN, UNK
  5. PROGRAF [Suspect]
     Dosage: 1.6 MG,
     Route: 048
     Dates: start: 20100606, end: 20100606
  6. PROGRAF [Suspect]
     Dosage: 2 MG,
     Route: 048
     Dates: start: 20100720, end: 20100804
  7. PROGRAF [Suspect]
     Dosage: 1.6 MG,
     Route: 048
     Dates: start: 20100805, end: 20100829
  8. PROGRAF [Suspect]
     Dosage: 1.2 MG,
     Route: 048
     Dates: start: 20101014, end: 20101121
  9. CELLCEPT [Suspect]
     Dosage: 500 MG,
     Route: 048
     Dates: start: 20101114, end: 20101228
  10. PREDNISOLONE [Concomitant]
     Dosage: 7.5 MG,
     Route: 048
  11. PREDNISOLONE [Concomitant]
     Dosage: 3 MG,
     Route: 048
  12. CEFAZOLIN [Concomitant]
     Dosage: 600 MG,
     Route: 042
     Dates: start: 20100606
  13. GAMIMUNE N 5% [Concomitant]
     Dosage: UNK UKN, UNK
  14. PRECEDEX [Concomitant]
     Dosage: UNK UKN, UNK
  15. PROGRAF [Suspect]
     Dosage: 1.2 MG,
     Route: 048
     Dates: start: 20100830, end: 20100901
  16. SIMULECT [Suspect]
     Indication: RENAL TRANSPLANT
     Dosage: 10 MG,
     Route: 042
     Dates: start: 20100602, end: 20100602
  17. PROGRAF [Suspect]
     Dosage: 0.4 MG,
     Route: 042
     Dates: start: 20100603, end: 20100604
  18. PROGRAF [Suspect]
     Dosage: 2.8 MG,
     Route: 048
     Dates: start: 20100609, end: 20100609
  19. CELLCEPT [Suspect]
     Indication: RENAL TRANSPLANT
     Dosage: 500 MG
     Route: 048
     Dates: end: 20100622
  20. LANSOPRAZOLE [Concomitant]
     Dosage: UNK UKN, UNK
  21. PROGRAF [Suspect]
     Dosage: 1.8 MG,
     Route: 048
     Dates: start: 20100608, end: 20100608
  22. PREDNISOLONE [Concomitant]
     Dosage: 5 MG,
     Route: 048
  23. DOPAMINE HCL [Concomitant]
     Dosage: UNK UKN, UNK
  24. SIMULECT [Suspect]
     Dosage: 10 MG,
     Route: 042
     Dates: start: 20100606, end: 20100606
  25. PROGRAF [Suspect]
     Dosage: 0.2 MG,
     Route: 042
     Dates: start: 20100605, end: 20100605
  26. PROGRAF [Suspect]
     Dosage: 2.8 MG,
     Route: 048
     Dates: start: 20100614, end: 20100630
  27. PROGRAF [Suspect]
     Dosage: UNK UKN, UNK
     Route: 048
     Dates: start: 20101216
  28. PREDNISOLONE [Suspect]
     Dosage: 8 MG,
     Route: 042
     Dates: start: 20100605, end: 20100605
  29. PREDNISOLONE [Concomitant]
     Indication: RENAL TRANSPLANT
     Dosage: 10 MG,
     Route: 048
     Dates: start: 20100605
  30. PREDNISOLONE [Concomitant]
     Dosage: 15 MG,
     Route: 048
  31. MIDAZOLAM HCL [Concomitant]
     Indication: SEDATION
     Dosage: UNK UKN, UNK
     Route: 042
  32. CEFAZOLIN [Concomitant]
     Indication: INFECTION PROPHYLAXIS
     Dosage: 300 MG,
     Route: 042
     Dates: start: 20100603
  33. FENTANYL [Concomitant]
     Dosage: UNK UKN, UNK
  34. PROGRAF [Suspect]
     Indication: RENAL TRANSPLANT
     Dosage: 0.6 MG,
     Route: 042
     Dates: start: 20100602, end: 20100602
  35. PROGRAF [Suspect]
     Dosage: 3.2 MG,
     Route: 048
     Dates: start: 20100610, end: 20100613
  36. PROGRAF [Suspect]
     Dosage: 3.2 MG,
     Route: 048
     Dates: start: 20100701, end: 20100711
  37. PROGRAF [Suspect]
     Dosage: 2.8 MG,
     Route: 048
     Dates: start: 20100712, end: 20100719
  38. PROGRAF [Suspect]
     Dosage: 1.6 MG,
     Route: 048
     Dates: start: 20100902, end: 20101013
  39. PREDNISOLONE [Suspect]
     Indication: RENAL TRANSPLANT
     Dosage: 20 MG,
     Route: 042
     Dates: start: 20100602, end: 20100602
  40. CELLCEPT [Suspect]
     Dosage: 500 MG,
     Route: 048
     Dates: start: 20100904, end: 20101109
  41. PREDNISOLONE [Concomitant]
     Dosage: 12.5 MG,
     Route: 048

REACTIONS (6)
  - HYPERTENSION [None]
  - PNEUMONIA [None]
  - CYTOMEGALOVIRUS VIRAEMIA [None]
  - IRON DEFICIENCY ANAEMIA [None]
  - BRONCHITIS [None]
  - CARDIAC FAILURE [None]
